FAERS Safety Report 5166761-1 (Version None)
Quarter: 2006Q4

REPORT INFORMATION
  Report Type: 
  Country: None (occurrence: None)
  Receive Date: 20061207
  Receipt Date: 20061130
  Transmission Date: 20070319
  Serious: Yes (Other)
  Sender: FDA-Public Use
  Company Number: GB-ELI_LILLY_AND_COMPANY-GB200612000036

PATIENT
  Age: 17 Year
  Sex: Female

DRUGS (2)
  1. OLANZAPINE [Suspect]
     Indication: AGGRESSION
     Dosage: 5 MG, DAILY (1/D)
     Dates: start: 20060401
  2. QUETIAPINE FUMARATE [Concomitant]

REACTIONS (2)
  - COMPLEX PARTIAL SEIZURES [None]
  - ELECTROENCEPHALOGRAM ABNORMAL [None]
